FAERS Safety Report 22311008 (Version 1)
Quarter: 2023Q2

REPORT INFORMATION
  Report Type: Spontaneous
  Country: GB (occurrence: GB)
  Receive Date: 20230511
  Receipt Date: 20230511
  Transmission Date: 20230722
  Serious: Yes (Other)
  Sender: FDA-Public Use
  Company Number: GB-MHRA-MED-202305031000266280-DBHRV

PATIENT

DRUGS (4)
  1. PROGESTERONE [Interacting]
     Active Substance: PROGESTERONE
     Indication: Hormone level abnormal
     Route: 065
  2. METHYLPHENIDATE HYDROCHLORIDE [Interacting]
     Active Substance: METHYLPHENIDATE HYDROCHLORIDE
     Indication: Product used for unknown indication
     Route: 065
  3. CETIRIZINE HYDROCHLORIDE [Concomitant]
     Active Substance: CETIRIZINE HYDROCHLORIDE
     Dates: end: 202302
  4. IRON [Concomitant]
     Active Substance: IRON

REACTIONS (6)
  - Weight decreased [Not Recovered/Not Resolved]
  - Asthenia [Unknown]
  - Disturbance in attention [Unknown]
  - Hyperacusis [Unknown]
  - Malabsorption [Unknown]
  - Product use in unapproved indication [Recovered/Resolved]

NARRATIVE: CASE EVENT DATE: 20220101
